FAERS Safety Report 24232772 (Version 1)
Quarter: 2024Q3

REPORT INFORMATION
  Report Type: Spontaneous
  Country: FR (occurrence: FR)
  Receive Date: 20240821
  Receipt Date: 20240821
  Transmission Date: 20241017
  Serious: Yes (Other)
  Sender: AMGEN
  Company Number: FR-AMGEN-FRASP2024161462

PATIENT

DRUGS (1)
  1. ADALIMUMAB [Suspect]
     Active Substance: ADALIMUMAB
     Indication: Myositis
     Dosage: UNK
     Route: 065

REACTIONS (8)
  - Inclusion body myositis [Unknown]
  - Haematological malignancy [Unknown]
  - Myositis [Unknown]
  - Sarcoidosis [Unknown]
  - Autoimmune disorder [Unknown]
  - Drug effective for unapproved indication [Unknown]
  - Drug ineffective for unapproved indication [Unknown]
  - Off label use [Unknown]
